FAERS Safety Report 19650769 (Version 1)
Quarter: 2021Q3

REPORT INFORMATION
  Report Type: Spontaneous
  Country: JP (occurrence: JP)
  Receive Date: 20210803
  Receipt Date: 20210803
  Transmission Date: 20211014
  Serious: Yes (Other)
  Sender: FDA-Public Use
  Company Number: JP-SUN PHARMACEUTICAL INDUSTRIES LTD-2021R1-306341

PATIENT
  Age: 43 Year
  Sex: Male

DRUGS (3)
  1. NICARDIPINE [Suspect]
     Active Substance: NICARDIPINE
     Indication: HYPERTENSION
     Dosage: UNK  (5 MG/H)
     Route: 065
  2. METOCLOPRAMIDE. [Suspect]
     Active Substance: METOCLOPRAMIDE
     Indication: NAUSEA
     Dosage: UNK
     Route: 065
  3. PHENTOLAMINE [Suspect]
     Active Substance: PHENTOLAMINE
     Indication: HYPERTENSION
     Dosage: UNK ((2 MG/H)
     Route: 065

REACTIONS (1)
  - Hypertensive crisis [Recovered/Resolved]
